FAERS Safety Report 12138823 (Version 2)
Quarter: 2016Q3

REPORT INFORMATION
  Report Type: Spontaneous
  Country: US (occurrence: US)
  Receive Date: 20160302
  Receipt Date: 20160712
  Transmission Date: 20161109
  Serious: Yes (Hospitalization, Other)
  Sender: FDA-Public Use
  Company Number: US-BAYER-2016-041153

PATIENT
  Age: 19 Year
  Sex: Female
  Weight: 65.76 kg

DRUGS (4)
  1. CLARITIN [Concomitant]
     Active Substance: LORATADINE
     Dosage: 10 MG, UNK
  2. OXYCODONE [Concomitant]
     Active Substance: OXYCODONE
  3. ZOVIRAX [Concomitant]
     Active Substance: ACYCLOVIR
     Dosage: 5 %, UNK
  4. MIRENA [Suspect]
     Active Substance: LEVONORGESTREL
     Indication: CONTRACEPTION
     Dosage: 20 MCG/24HR, CONT
     Route: 015
     Dates: start: 20141024, end: 20151020

REACTIONS (9)
  - Device issue [None]
  - Headache [None]
  - Genital haemorrhage [None]
  - Embedded device [None]
  - Abdominal pain upper [None]
  - Abdominal distension [None]
  - Device difficult to use [None]
  - Vulvovaginal pain [None]
  - Fatigue [None]

NARRATIVE: CASE EVENT DATE: 201412
